FAERS Safety Report 24083750 (Version 1)
Quarter: 2024Q3

REPORT INFORMATION
  Report Type: Spontaneous
  Country: GB (occurrence: GB)
  Receive Date: 20240712
  Receipt Date: 20240712
  Transmission Date: 20241017
  Serious: Yes (Hospitalization)
  Sender: MYLAN
  Company Number: GB-MYLANLABS-2024M1064941

PATIENT
  Sex: Male

DRUGS (1)
  1. CLOZARIL [Suspect]
     Active Substance: CLOZAPINE
     Indication: Schizophrenia
     Dosage: QD (300 MG MORNING, 355 MG NIGHT)
     Route: 048
     Dates: start: 20130930

REACTIONS (2)
  - Aggression [Unknown]
  - Treatment noncompliance [Unknown]
